FAERS Safety Report 17128449 (Version 1)
Quarter: 2019Q4

REPORT INFORMATION
  Report Type: Spontaneous
  Country: CA (occurrence: CA)
  Receive Date: 20191209
  Receipt Date: 20191209
  Transmission Date: 20200122
  Serious: Yes (Death)
  Sender: FDA-Public Use
  Company Number: CA-PFIZER INC-2019525750

PATIENT
  Age: 71 Year
  Sex: Female

DRUGS (9)
  1. FENTANYL. [Suspect]
     Active Substance: FENTANYL
     Dosage: 18 UG, UNK
     Route: 023
  2. FENTANYL. [Suspect]
     Active Substance: FENTANYL
     Dosage: 12 UG, UNK
     Route: 023
  3. MIRTAZAPINE. [Concomitant]
     Active Substance: MIRTAZAPINE
     Dosage: UNK
  4. DIGOXIN. [Concomitant]
     Active Substance: DIGOXIN
     Dosage: UNK
  5. METOPROLOL. [Concomitant]
     Active Substance: METOPROLOL
     Dosage: UNK
  6. OXAZEPAM. [Concomitant]
     Active Substance: OXAZEPAM
     Dosage: UNK
  7. HYDROMORPHONE [Concomitant]
     Active Substance: HYDROMORPHONE
     Dosage: UNK
  8. FENTANYL. [Suspect]
     Active Substance: FENTANYL
     Indication: PAIN
     Dosage: 6 UG, UNK
     Route: 023
  9. ACETAMINOPHEN. [Concomitant]
     Active Substance: ACETAMINOPHEN
     Dosage: UNK

REACTIONS (11)
  - Cyanosis [Fatal]
  - Loss of consciousness [Fatal]
  - Opiates positive [Fatal]
  - Pulse absent [Fatal]
  - Petechiae [Fatal]
  - Pulmonary oedema [Fatal]
  - Product administration error [Fatal]
  - Ecchymosis [Fatal]
  - Accidental overdose [Fatal]
  - Respiratory depression [Fatal]
  - Postmortem blood drug level increased [Fatal]
